FAERS Safety Report 9504975 (Version 1)
Quarter: 2013Q3

REPORT INFORMATION
  Report Type: Spontaneous
  Country: FR (occurrence: FR)
  Receive Date: 20130906
  Receipt Date: 20130906
  Transmission Date: 20140515
  Serious: Yes (Hospitalization)
  Sender: FDA-Public Use
  Company Number: FR-WATSON-2013-16160

PATIENT
  Age: 25 Year
  Sex: Female

DRUGS (12)
  1. DOXORUBICIN [Suspect]
     Indication: HODGKIN^S DISEASE STAGE IV
     Dosage: 58 MG, DAILY
     Route: 042
     Dates: start: 20130515, end: 20130515
  2. VALACICLOVIR [Suspect]
     Indication: PRODUCT USED FOR UNKNOWN INDICATION
     Dosage: 1 MG, DAILY
     Route: 048
     Dates: start: 20130517, end: 20130522
  3. TRAMADOL [Suspect]
     Indication: PRODUCT USED FOR UNKNOWN INDICATION
     Dosage: 200 MG, DAILY
     Route: 048
     Dates: start: 20130517, end: 20130522
  4. METOCLOPRAMIDE [Suspect]
     Indication: NAUSEA
     Dosage: PRN
     Route: 048
     Dates: start: 20130515, end: 20130515
  5. CALCIUM FOLINATE (UNKNOWN) [Suspect]
     Indication: PRODUCT USED FOR UNKNOWN INDICATION
     Dosage: 1 DF, DAILY
     Route: 048
     Dates: start: 20130517, end: 20130522
  6. CYCLOPHOSPHAMIDE (UNKNOWN) [Suspect]
     Indication: HODGKIN^S DISEASE STAGE IV
     Dosage: 2.075 MG, DAILY
     Route: 042
     Dates: start: 20130515, end: 20130515
  7. PREDNISONE (UNKNOWN) [Suspect]
     Indication: HODGKIN^S DISEASE STAGE IV
     Dosage: 66 MG, DAILY
     Route: 048
     Dates: start: 20130515, end: 20130517
  8. ETOPOSIDE (UNKNOWN) [Suspect]
     Indication: HODGKIN^S DISEASE STAGE IV
     Dosage: 332 MG, DAILY
     Route: 042
     Dates: start: 20130515, end: 20130517
  9. ALPRAZOLAM (UNKNOWN) [Suspect]
     Indication: INSOMNIA
     Dosage: 50 MG, DAILY
     Route: 048
     Dates: start: 20130514, end: 20130522
  10. NATULAN [Suspect]
     Indication: HODGKIN^S DISEASE STAGE IV
     Dosage: 150 MG, DAILY
     Route: 048
     Dates: start: 20130515, end: 20130517
  11. UROMITEXAN [Suspect]
     Indication: HODGKIN^S DISEASE STAGE IV
     Dosage: 1.35 MG, UNK
     Route: 042
     Dates: start: 20130515, end: 20130515
  12. BACTRIM [Suspect]
     Indication: PRODUCT USED FOR UNKNOWN INDICATION
     Dosage: 1 DF, DAILY
     Route: 048
     Dates: start: 20130517, end: 20130522

REACTIONS (1)
  - Mixed liver injury [Recovered/Resolved]
